FAERS Safety Report 10580809 (Version 1)
Quarter: 2014Q4

REPORT INFORMATION
  Report Type: Spontaneous
  Country: US (occurrence: US)
  Receive Date: 20141113
  Receipt Date: 20141113
  Transmission Date: 20150529
  Serious: No
  Sender: FDA-Public Use
  Company Number: US-BIOGENIDEC-2014BI117238

PATIENT
  Sex: Female

DRUGS (1)
  1. TECFIDERA [Suspect]
     Active Substance: DIMETHYL FUMARATE
     Indication: MULTIPLE SCLEROSIS
     Dates: start: 20140716

REACTIONS (5)
  - Headache [Recovered/Resolved]
  - Hot flush [Recovered/Resolved]
  - Ear swelling [Recovered/Resolved]
  - Rash [Not Recovered/Not Resolved]
  - Abdominal pain upper [Recovered/Resolved]
